FAERS Safety Report 7197690-X (Version None)
Quarter: 2010Q4

REPORT INFORMATION
  Report Type: 
  Country: None (occurrence: None)
  Receive Date: 20101227
  Receipt Date: 20101206
  Transmission Date: 20110411
  Serious: No
  Sender: FDA-Public Use
  Company Number: US-B.I. PHARMACEUTICALS,INC./RIDGEFIELD-2010-BP-13956BP

PATIENT
  Age: 76 Year
  Sex: Male

DRUGS (8)
  1. PRADAXA [Suspect]
     Dosage: 300 MG
     Dates: start: 20101115
  2. COMBIVENT [Concomitant]
     Indication: RESPIRATORY DISORDER
  3. METFORMIN HCL [Concomitant]
     Indication: DIABETES MELLITUS
  4. ZETIA [Concomitant]
     Indication: BLOOD CHOLESTEROL
  5. CARVEDILOL [Concomitant]
     Indication: CARDIAC DISORDER
  6. FUROSEMIDE [Concomitant]
     Indication: DIURETIC THERAPY
  7. SPIRIVA [Concomitant]
     Dosage: 18 MCG
  8. OXYGEN [Concomitant]
     Indication: DYSPNOEA

REACTIONS (1)
  - FATIGUE [None]
